FAERS Safety Report 19206425 (Version 2)
Quarter: 2021Q3

REPORT INFORMATION
  Report Type: Report from Study
  Country: US (occurrence: US)
  Receive Date: 20210503
  Receipt Date: 20210712
  Transmission Date: 20211014
  Serious: Yes (Other)
  Sender: FDA-Public Use
  Company Number: NVSC2021US091038

PATIENT
  Sex: Female

DRUGS (2)
  1. COSENTYX [Suspect]
     Active Substance: SECUKINUMAB
     Indication: PSORIASIS
  2. COSENTYX [Suspect]
     Active Substance: SECUKINUMAB
     Indication: PSORIATIC ARTHROPATHY
     Dosage: 300 MG, OTHER (QW FOR 5W AND THEN Q4W)
     Route: 058

REACTIONS (10)
  - Nervous system disorder [Unknown]
  - Psoriasis [Unknown]
  - Skin burning sensation [Unknown]
  - Product dose omission issue [Unknown]
  - Psoriatic arthropathy [Unknown]
  - Poor quality sleep [Unknown]
  - Joint lock [Unknown]
  - Pruritus [Unknown]
  - Arthritis [Unknown]
  - Dermatitis [Unknown]
